FAERS Safety Report 8207027-2 (Version None)
Quarter: 2012Q1

REPORT INFORMATION
  Report Type: 
  Country: None (occurrence: None)
  Receive Date: 20120314
  Receipt Date: 20120308
  Transmission Date: 20120608
  Serious: Yes (Hospitalization)
  Sender: FDA-Public Use
  Company Number: JP-JNJFOC-20120202474

PATIENT
  Sex: Female
  Weight: 47 kg

DRUGS (27)
  1. DOXORUBICIN HCL [Suspect]
     Dosage: CYCLE 6
     Route: 042
     Dates: start: 20091030, end: 20091030
  2. DOXORUBICIN HCL [Suspect]
     Dosage: CYCLE 2
     Route: 042
     Dates: start: 20090626, end: 20090626
  3. DOXORUBICIN HCL [Suspect]
     Dosage: CYCLE 7
     Route: 042
     Dates: start: 20091208, end: 20091208
  4. DOXORUBICIN HCL [Suspect]
     Dosage: CYCLE 19
     Route: 042
     Dates: start: 20110107, end: 20110107
  5. AZULENE [Concomitant]
     Route: 065
     Dates: start: 20090725
  6. RAMELTEON [Concomitant]
     Indication: PROPHYLAXIS
     Route: 048
     Dates: start: 20110105, end: 20110107
  7. DOXORUBICIN HCL [Suspect]
     Dosage: CYCLE 8
     Route: 042
     Dates: start: 20100105, end: 20100105
  8. DOXORUBICIN HCL [Suspect]
     Dosage: CYCLE 10
     Route: 042
     Dates: start: 20100309, end: 20100309
  9. DOXORUBICIN HCL [Suspect]
     Dosage: CYCLE 12
     Route: 042
     Dates: start: 20100507, end: 20100507
  10. GRANISETRON [Concomitant]
     Indication: PROPHYLAXIS
     Route: 042
     Dates: end: 20110107
  11. DOXORUBICIN HCL [Suspect]
     Dosage: CYCLE 14
     Route: 042
     Dates: start: 20100713, end: 20100713
  12. DOXORUBICIN HCL [Suspect]
     Dosage: CYCLE 17
     Route: 042
     Dates: start: 20101012, end: 20101012
  13. DOXORUBICIN HCL [Suspect]
     Dosage: CYCLE 18
     Route: 042
     Dates: start: 20101126, end: 20101126
  14. HEPARIN [Concomitant]
     Indication: PALMAR-PLANTAR ERYTHRODYSAESTHESIA SYNDROME
     Route: 061
     Dates: start: 20091002, end: 20111107
  15. DOXORUBICIN HCL [Suspect]
     Indication: OVARIAN CANCER RECURRENT
     Dosage: CYCLE 5
     Route: 042
     Dates: start: 20090930, end: 20090930
  16. DOXORUBICIN HCL [Suspect]
     Dosage: CYCLE 11
     Route: 042
     Dates: start: 20100406, end: 20100406
  17. DOXORUBICIN HCL [Suspect]
     Dosage: CYCLE 3
     Route: 042
     Dates: start: 20090724, end: 20090724
  18. DOXORUBICIN HCL [Suspect]
     Dosage: CYCLE 16
     Route: 042
     Dates: start: 20100914, end: 20100914
  19. DOXORUBICIN HCL [Suspect]
     Dosage: CYCLE 4
     Route: 042
     Dates: start: 20090828, end: 20090828
  20. AZUNOL [Concomitant]
     Indication: STOMATITIS
     Route: 049
     Dates: start: 20090725, end: 20091208
  21. APHTASOLON [Concomitant]
     Indication: STOMATITIS
     Route: 049
     Dates: start: 20090725, end: 20110107
  22. HEPARIN [Concomitant]
     Indication: PROPHYLAXIS
     Route: 061
     Dates: start: 20091002, end: 20111107
  23. DOXORUBICIN HCL [Suspect]
     Dosage: CYCLE 9
     Route: 042
     Dates: start: 20100209, end: 20100209
  24. DOXORUBICIN HCL [Suspect]
     Dosage: CYCLE 1
     Route: 042
     Dates: start: 20090529, end: 20090529
  25. MOHRUS TAPE [Concomitant]
     Indication: BACK PAIN
     Route: 062
     Dates: end: 20110107
  26. DOXORUBICIN HCL [Suspect]
     Dosage: CYCLE 15
     Route: 042
     Dates: start: 20100817, end: 20100817
  27. DOXORUBICIN HCL [Suspect]
     Dosage: CYCLE 13
     Route: 042
     Dates: start: 20100611, end: 20100611

REACTIONS (2)
  - MYOCARDIAL INFARCTION [None]
  - ARRHYTHMIA [None]
